FAERS Safety Report 13587353 (Version 1)
Quarter: 2017Q2

REPORT INFORMATION
  Report Type: Spontaneous
  Country: US (occurrence: US)
  Receive Date: 20170526
  Receipt Date: 20170526
  Transmission Date: 20170830
  Serious: Yes (Hospitalization)
  Sender: FDA-Public Use
  Company Number: US-FRESENIUS KABI-FK201704533

PATIENT
  Age: 71 Year
  Sex: Male

DRUGS (1)
  1. MORPHINE (MANUFACTURER UNKNOWN) [Suspect]
     Active Substance: MORPHINE
     Indication: FIBROMYALGIA
     Route: 065

REACTIONS (2)
  - Encephalopathy [Recovered/Resolved]
  - Overdose [Recovered/Resolved]
